FAERS Safety Report 18197236 (Version 1)
Quarter: 2020Q3

REPORT INFORMATION
  Report Type: Spontaneous
  Country: ZA (occurrence: ZA)
  Receive Date: 20200826
  Receipt Date: 20200826
  Transmission Date: 20201103
  Serious: Yes (Other)
  Sender: FDA-Public Use
  Company Number: ZA-SA-2020SA222617

PATIENT

DRUGS (5)
  1. CELEBREX [Concomitant]
     Active Substance: CELECOXIB
  2. CHLOROQUINE. [Suspect]
     Active Substance: CHLOROQUINE
  3. ARAVA [Suspect]
     Active Substance: LEFLUNOMIDE
  4. METHOTREXATE. [Concomitant]
     Active Substance: METHOTREXATE
     Dosage: UNK
     Dates: start: 2020
  5. SALAZOPYRIN [Concomitant]
     Active Substance: SULFASALAZINE

REACTIONS (4)
  - Eye disorder [Unknown]
  - Synovitis [Unknown]
  - Hypersensitivity [Unknown]
  - Rheumatoid arthritis [Unknown]
